FAERS Safety Report 17507695 (Version 1)
Quarter: 2020Q1

REPORT INFORMATION
  Report Type: Other
  Country: FR (occurrence: FR)
  Receive Date: 20200305
  Receipt Date: 20200305
  Transmission Date: 20200409
  Serious: Yes (Hospitalization)
  Sender: FDA-Public Use
  Company Number: FR-CELLTRION INC.-2020FR019777

PATIENT

DRUGS (13)
  1. BACTRIM [Concomitant]
     Active Substance: SULFAMETHOXAZOLE\TRIMETHOPRIM
  2. ULTIBRO BREEZHALER [Concomitant]
     Active Substance: GLYCOPYRRONIUM\INDACATEROL
  3. CORTANCYL [Concomitant]
     Active Substance: PREDNISONE
  4. TRUXIMA [Suspect]
     Active Substance: RITUXIMAB-ABBS
     Indication: GRANULOMATOSIS WITH POLYANGIITIS
     Dosage: 610 MG, 1/WEEK
     Route: 042
     Dates: start: 20191211, end: 20200102
  5. SPECIAFOLDINE [Concomitant]
     Active Substance: FOLIC ACID
  6. CALCIDIA [Concomitant]
     Active Substance: CALCIUM CARBONATE
  7. POLARAMINE [Suspect]
     Active Substance: DEXCHLORPHENIRAMINE MALEATE
     Indication: PREMEDICATION
     Dosage: 1 DF, 1/WEEK
     Route: 048
     Dates: start: 20191211, end: 20200102
  8. METHYLPREDNISOLONE MYLAN [Suspect]
     Active Substance: METHYLPREDNISOLONE
     Indication: PREMEDICATION
     Dosage: 80 MG, 1/WEEK
     Route: 042
     Dates: start: 20191211, end: 20200102
  9. PREVNAR 13 [Suspect]
     Active Substance: PNEUMOCOCCAL 13-VALENT CONJUGATE VACCINE
     Indication: PROPHYLAXIS
     Dosage: 1 DF, 1 TOTAL
     Route: 030
     Dates: start: 20191211, end: 20191211
  10. UVEDOSE [Concomitant]
     Active Substance: CHOLECALCIFEROL
  11. LERCANIDIPINE (CHLORHYDRATE DE) [Concomitant]
     Active Substance: LERCANIDIPINE HYDROCHLORIDE
  12. AIROMIR [Concomitant]
     Active Substance: ALBUTEROL SULFATE
  13. DIFFU K [Concomitant]
     Active Substance: POTASSIUM CHLORIDE

REACTIONS (6)
  - Rash morbilliform [Recovered/Resolved]
  - Pyrexia [Recovered/Resolved]
  - Hepatocellular injury [Recovering/Resolving]
  - Acute kidney injury [Recovered/Resolved]
  - Purpura [Recovered/Resolved]
  - Underdose [Unknown]

NARRATIVE: CASE EVENT DATE: 20200105
